FAERS Safety Report 14280644 (Version 3)
Quarter: 2018Q1

REPORT INFORMATION
  Report Type: Spontaneous
  Country: GB (occurrence: GB)
  Receive Date: 20171213
  Receipt Date: 20180209
  Transmission Date: 20180508
  Serious: Yes (Other)
  Sender: FDA-Public Use
  Company Number: GB-CONCORDIA PHARMACEUTICALS INC.-E2B_00008802

PATIENT
  Age: 6 Year
  Sex: Female

DRUGS (1)
  1. PREDNISOLONE. [Suspect]
     Active Substance: PREDNISOLONE
     Indication: MOUTH ULCERATION
     Dosage: UNK
     Route: 048

REACTIONS (7)
  - Adrenal insufficiency [Recovering/Resolving]
  - Adrenal suppression [Recovering/Resolving]
  - Cushingoid [Recovering/Resolving]
  - Hyperkalaemia [Recovering/Resolving]
  - Primary adrenal insufficiency [Recovering/Resolving]
  - Hyponatraemia [Recovering/Resolving]
  - Diarrhoea [Recovering/Resolving]
